FAERS Safety Report 21781109 (Version 1)
Quarter: 2022Q4

REPORT INFORMATION
  Report Type: Report from Study
  Country: US (occurrence: US)
  Receive Date: 20221227
  Receipt Date: 20221227
  Transmission Date: 20230113
  Serious: No
  Sender: FDA-Public Use
  Company Number: US-ABBVIE-4202545

PATIENT
  Age: 59 Year
  Sex: Female

DRUGS (2)
  1. RINVOQ [Suspect]
     Active Substance: UPADACITINIB
     Indication: Rheumatoid arthritis
     Route: 048
     Dates: start: 20221111
  2. RINVOQ [Suspect]
     Active Substance: UPADACITINIB
     Indication: Rheumatoid arthritis
     Route: 048
     Dates: start: 20221016

REACTIONS (13)
  - Gastroenteritis viral [Unknown]
  - Fatigue [Unknown]
  - Fall [Unknown]
  - Arthralgia [Unknown]
  - Musculoskeletal stiffness [Unknown]
  - Contusion [Recovering/Resolving]
  - Impaired healing [Unknown]
  - Skin discolouration [Recovering/Resolving]
  - Muscular weakness [Unknown]
  - Pain [Unknown]
  - Skin laceration [Unknown]
  - Dyspnoea exertional [Unknown]
  - Skin atrophy [Unknown]

NARRATIVE: CASE EVENT DATE: 20221112
